FAERS Safety Report 12548887 (Version 2)
Quarter: 2016Q3

REPORT INFORMATION
  Report Type: Other
  Country: FR (occurrence: FR)
  Receive Date: 20160712
  Receipt Date: 20160815
  Transmission Date: 20161109
  Serious: Yes (Death, Hospitalization, Other)
  Sender: FDA-Public Use
  Company Number: FR-ASTELLAS-2016US026432

PATIENT
  Age: 82 Year
  Sex: Male

DRUGS (17)
  1. CASODEX [Suspect]
     Active Substance: BICALUTAMIDE
     Indication: PROSTATE CANCER
     Dosage: 1 DF, DAILY
     Route: 048
     Dates: start: 20160210
  2. LACTULOSE. [Suspect]
     Active Substance: LACTULOSE
     Indication: CONSTIPATION
     Dosage: 2 DF, DAILY
     Route: 048
     Dates: start: 20160528
  3. NICORANDIL BIOGARAN [Suspect]
     Active Substance: NICORANDIL
     Indication: ANGINA UNSTABLE
     Dosage: 1 DF, DAILY
     Route: 048
  4. LYSANXIA [Concomitant]
     Active Substance: PRAZEPAM
     Indication: PRODUCT USED FOR UNKNOWN INDICATION
     Dosage: UNK UNK, UNKNOWN FREQ.
     Route: 065
     Dates: end: 20160610
  5. BISOPROLOL EG [Suspect]
     Active Substance: BISOPROLOL
     Indication: HYPERTENSION
     Dosage: 1.25 MG, DAILY
     Route: 048
     Dates: start: 20151127
  6. JANUVIA [Suspect]
     Active Substance: SITAGLIPTIN PHOSPHATE
     Indication: DIABETES MELLITUS
     Dosage: 1 DF, DAILY
     Route: 048
     Dates: end: 20160606
  7. PREDNISONE. [Suspect]
     Active Substance: PREDNISONE
     Indication: PRODUCT USED FOR UNKNOWN INDICATION
     Dosage: 1 MG, DAILY
     Route: 048
     Dates: end: 20160606
  8. NORMACOL                           /00086101/ [Suspect]
     Active Substance: SULFAMETHOXAZOLE\TRIMETHOPRIM
     Indication: CONSTIPATION
     Dosage: UNK, IF NECESSARY
     Route: 054
     Dates: start: 20160507
  9. XTANDI [Suspect]
     Active Substance: ENZALUTAMIDE
     Indication: PROSTATE CANCER
     Dosage: 160 MG, DAILY
     Route: 048
     Dates: start: 20160524
  10. DOLIPRANE [Suspect]
     Active Substance: ACETAMINOPHEN
     Indication: PAIN
     Dosage: 1 G, IF NECESSARY
     Route: 048
  11. OXYCONTIN [Suspect]
     Active Substance: OXYCODONE HYDROCHLORIDE
     Indication: PAIN
     Route: 048
     Dates: start: 20160526
  12. OXYNORMORO [Suspect]
     Active Substance: OXYCODONE
     Indication: PAIN
     Dosage: 5 MG, IF NECESSARY
     Route: 048
     Dates: start: 20160526
  13. KARDEGIC [Suspect]
     Active Substance: ASPIRIN LYSINE
     Indication: CARDIOVASCULAR EVENT PROPHYLAXIS
     Dosage: 1 DF, DAILY
     Route: 048
  14. PRAVASTATINE EG [Suspect]
     Active Substance: PRAVASTATIN SODIUM
     Indication: HYPERCHOLESTEROLAEMIA
     Dosage: 1 DF, DAILY
     Route: 048
     Dates: end: 20160606
  15. ESOMEPRAZOLE EG [Suspect]
     Active Substance: ESOMEPRAZOLE
     Indication: GASTROOESOPHAGEAL REFLUX DISEASE
     Dosage: 1 DF, DAILY
     Route: 048
     Dates: end: 20160606
  16. DIFFU K [Suspect]
     Active Substance: POTASSIUM CHLORIDE
     Indication: HYPOKALAEMIA
     Dosage: 1 DF, DAILY
     Route: 048
     Dates: start: 20160528, end: 20160606
  17. ACETAMINOPHEN. [Concomitant]
     Active Substance: ACETAMINOPHEN
     Indication: PRODUCT USED FOR UNKNOWN INDICATION
     Dosage: UNK UNK, UNKNOWN FREQ.
     Route: 065

REACTIONS (4)
  - Renal failure [Unknown]
  - Hepatic encephalopathy [Unknown]
  - Hepatic function abnormal [Fatal]
  - Hepatorenal syndrome [Unknown]

NARRATIVE: CASE EVENT DATE: 20160609
